FAERS Safety Report 4281866-5 (Version None)
Quarter: 2004Q1

REPORT INFORMATION
  Report Type: 
  Country: None (occurrence: None)
  Receive Date: 20040108
  Receipt Date: 20030116
  Transmission Date: 20041129
  Serious: Yes (Other)
  Sender: FDA-Public Use
  Company Number: HQ0152425JAN2002

PATIENT
  Age: 76 Year
  Sex: Female
  Weight: 97.61 kg

DRUGS (1)
  1. PREMPRO [Suspect]
     Dosage: 0.625MG/2.5MG, ORAL
     Route: 048
     Dates: start: 19960101, end: 20020618

REACTIONS (5)
  - ABDOMINAL PAIN [None]
  - CEREBROVASCULAR ACCIDENT [None]
  - HEPATIC CYST [None]
  - HEPATIC STEATOSIS [None]
  - LOOSE STOOLS [None]
